FAERS Safety Report 4862464-9 (Version None)
Quarter: 2005Q4

REPORT INFORMATION
  Report Type: 
  Country: None (occurrence: None)
  Receive Date: 20051221
  Receipt Date: 20051209
  Transmission Date: 20060501
  Serious: Yes (Other)
  Sender: FDA-Public Use
  Company Number: CA-BRISTOL-MYERS SQUIBB COMPANY-13219837

PATIENT
  Age: 62 Year
  Sex: Female

DRUGS (8)
  1. TEQUIN [Suspect]
     Route: 048
  2. CELEXA [Concomitant]
     Route: 048
  3. GABAPENTIN [Concomitant]
     Route: 048
  4. GRAVOL TAB [Concomitant]
     Route: 048
  5. HEPARIN [Concomitant]
     Route: 058
  6. MORPHINE [Concomitant]
     Route: 048
  7. SURFAK [Concomitant]
     Route: 048
  8. TYLENOL [Concomitant]
     Route: 048

REACTIONS (1)
  - HYPOGLYCAEMIA [None]
